FAERS Safety Report 5166699-X (Version None)
Quarter: 2006Q4

REPORT INFORMATION
  Report Type: 
  Country: None (occurrence: None)
  Receive Date: 20061201
  Receipt Date: 20061201
  Transmission Date: 20070319
  Serious: No
  Sender: FDA-Public Use
  Company Number: None

PATIENT
  Age: 49 Year
  Sex: Female

DRUGS (4)
  1. DOXYCYCLINE MONOHYDRATE [Suspect]
     Indication: ACNE
     Dosage: ONE  PO  Q 3 DAYS
     Route: 048
     Dates: start: 20000909, end: 20020129
  2. DIFFERIN [Concomitant]
  3. AZELEX [Concomitant]
  4. KLARON [Concomitant]

REACTIONS (3)
  - ABDOMINAL DISCOMFORT [None]
  - NAUSEA [None]
  - VOMITING [None]
